FAERS Safety Report 9554161 (Version 1)
Quarter: 2013Q3

REPORT INFORMATION
  Report Type: Report from Study
  Country: DE (occurrence: DE)
  Receive Date: 20130925
  Receipt Date: 20130925
  Transmission Date: 20140515
  Serious: Yes (Hospitalization, Disabling, Other)
  Sender: FDA-Public Use
  Company Number: DE-ROCHE-1277267

PATIENT
  Age: 45 Year
  Sex: Female

DRUGS (1)
  1. INTERFERON ALFA-2A [Suspect]
     Indication: MALIGNANT MELANOMA
     Dosage: 3 MIU
     Route: 065

REACTIONS (4)
  - Metastasis [Recovered/Resolved]
  - Metastases to lymph nodes [Recovered/Resolved]
  - Metastasis [Recovered/Resolved]
  - Metastases to skin [Recovered/Resolved]
